FAERS Safety Report 5096976-2 (Version None)
Quarter: 2006Q3

REPORT INFORMATION
  Report Type: 
  Country: None (occurrence: None)
  Receive Date: 20060906
  Receipt Date: 20060223
  Transmission Date: 20061208
  Serious: Yes (Other)
  Sender: FDA-Public Use
  Company Number: PHEH2006US02572

PATIENT
  Age: 21 Year
  Sex: Female

DRUGS (1)
  1. LAMISIL [Suspect]
     Indication: NAIL TINEA
     Dosage: 250 MG, QD
     Route: 048
     Dates: start: 20040601, end: 20040901

REACTIONS (6)
  - BIOPSY [None]
  - DYSPEPSIA [None]
  - DYSPNOEA [None]
  - ENDOSCOPY [None]
  - GASTROOESOPHAGEAL REFLUX DISEASE [None]
  - PHARYNGEAL OEDEMA [None]
